FAERS Safety Report 5695163-4 (Version None)
Quarter: 2008Q2

REPORT INFORMATION
  Report Type: 
  Country: None (occurrence: None)
  Receive Date: 20080404
  Receipt Date: 20080324
  Transmission Date: 20081010
  Serious: Yes (Hospitalization)
  Sender: FDA-Public Use
  Company Number: US-PFIZER INC-2008026662

PATIENT
  Sex: Female
  Weight: 81.8 kg

DRUGS (14)
  1. CHANTIX [Suspect]
     Indication: SMOKING CESSATION THERAPY
     Dates: start: 20071101, end: 20071201
  2. CELEBREX [Concomitant]
  3. PREMARIN [Concomitant]
  4. ALLEGRA D 24 HOUR [Concomitant]
  5. MONTELUKAST SODIUM [Concomitant]
  6. NEURONTIN [Concomitant]
  7. CALCIUM [Concomitant]
  8. POTASSIUM CHLORIDE [Concomitant]
  9. MULTIVITAMINS WITH MINERALS [Concomitant]
  10. AMBIEN [Concomitant]
  11. OMEPRAZOLE [Concomitant]
  12. LISINOPRIL [Concomitant]
  13. TRICOR [Concomitant]
  14. TERIPARATIDE [Concomitant]

REACTIONS (4)
  - ANOREXIA [None]
  - DEHYDRATION [None]
  - FOOT OPERATION [None]
  - SMOKER [None]
